FAERS Safety Report 12117942 (Version 1)
Quarter: 2016Q1

REPORT INFORMATION
  Report Type: Spontaneous
  Country: GB (occurrence: GB)
  Receive Date: 20160226
  Receipt Date: 20160226
  Transmission Date: 20160526
  Serious: Yes (Other)
  Sender: FDA-Public Use
  Company Number: GB-ABBVIE-16K-167-1565930-00

PATIENT
  Age: 43 Year
  Sex: Male

DRUGS (2)
  1. COLESEVELAM [Concomitant]
     Active Substance: COLESEVELAM
     Indication: PRODUCT USED FOR UNKNOWN INDICATION
     Route: 054
  2. HUMIRA [Suspect]
     Active Substance: ADALIMUMAB
     Indication: CROHN^S DISEASE
     Route: 058
     Dates: start: 20150601

REACTIONS (3)
  - Lymphadenopathy [Unknown]
  - Alopecia [Unknown]
  - Pruritus [Unknown]

NARRATIVE: CASE EVENT DATE: 20160118
